FAERS Safety Report 22759385 (Version 3)
Quarter: 2023Q4

REPORT INFORMATION
  Report Type: Report from Study
  Country: US (occurrence: US)
  Receive Date: 20230728
  Receipt Date: 20231013
  Transmission Date: 20240110
  Serious: Yes (Hospitalization, Other)
  Sender: FDA-Public Use
  Company Number: US-GILEAD-2023-0637639

PATIENT
  Age: 55 Year
  Sex: Female
  Weight: 40.4 kg

DRUGS (1)
  1. AMBRISENTAN [Suspect]
     Active Substance: AMBRISENTAN
     Indication: Product used for unknown indication
     Dosage: 10 MG
     Route: 065
     Dates: start: 20170221

REACTIONS (2)
  - Right ventricular failure [Unknown]
  - Lung transplant [Recovered/Resolved]

NARRATIVE: CASE EVENT DATE: 20230101
